FAERS Safety Report 13584407 (Version 1)
Quarter: 2017Q2

REPORT INFORMATION
  Report Type: Spontaneous
  Country: IN (occurrence: IN)
  Receive Date: 20170526
  Receipt Date: 20170526
  Transmission Date: 20170830
  Serious: Yes (Death, Other)
  Sender: FDA-Public Use
  Company Number: IN-CPL-000021

PATIENT
  Age: 23 Year
  Sex: Female

DRUGS (1)
  1. FOLIC ACID. [Suspect]
     Active Substance: FOLIC ACID

REACTIONS (8)
  - Toxicity to various agents [Fatal]
  - Hepatic necrosis [Unknown]
  - Renal tubular necrosis [Unknown]
  - Completed suicide [Fatal]
  - Maternal exposure during pregnancy [Unknown]
  - Metabolic acidosis [Unknown]
  - Shock [Fatal]
  - Gastrointestinal perforation [Fatal]
